FAERS Safety Report 8108454-4 (Version None)
Quarter: 2012Q1

REPORT INFORMATION
  Report Type: 
  Country: None (occurrence: None)
  Receive Date: 20120202
  Receipt Date: 20120130
  Transmission Date: 20120608
  Serious: Yes (Death, Other)
  Sender: FDA-Public Use
  Company Number: PHHY2012MX001170

PATIENT
  Sex: Male

DRUGS (3)
  1. CRESTOR [Concomitant]
     Dosage: 1 DF, DAILY
  2. TRILEPTAL [Suspect]
     Indication: EPILEPSY
     Dosage: 2 DF, DAILY
  3. GLIMETAL [Concomitant]
     Dosage: 1 DF, DAILY

REACTIONS (7)
  - CARDIAC FIBRILLATION [None]
  - PAIN IN EXTREMITY [None]
  - BLOOD CHOLESTEROL INCREASED [None]
  - DIABETIC NEUROPATHY [None]
  - DIABETES MELLITUS [None]
  - CARDIAC ARREST [None]
  - PYREXIA [None]
